FAERS Safety Report 26091934 (Version 2)
Quarter: 2025Q4

REPORT INFORMATION
  Report Type: Spontaneous
  Country: EU (occurrence: EU)
  Receive Date: 20251126
  Receipt Date: 20251202
  Transmission Date: 20260118
  Serious: Yes (Death)
  Sender: JOHNSON AND JOHNSON
  Company Number: EU-JNJFOC-20251171091

PATIENT
  Age: 60 Year
  Sex: Male
  Weight: 71 kg

DRUGS (1)
  1. TECVAYLI [Suspect]
     Active Substance: TECLISTAMAB-CQYV
     Indication: Plasma cell myeloma
     Route: 065
     Dates: start: 20250910, end: 20250918

REACTIONS (2)
  - Plasma cell myeloma [Fatal]
  - Product administration error [Unknown]
